FAERS Safety Report 13004712 (Version 1)
Quarter: 2016Q4

REPORT INFORMATION
  Report Type: Spontaneous
  Country: US (occurrence: US)
  Receive Date: 20161207
  Receipt Date: 20161207
  Transmission Date: 20170207
  Serious: Yes (Hospitalization, Other)
  Sender: FDA-Public Use
  Company Number: US-CLINIGEN GROUP PLC/ CLINIGEN HEALTHCARE LTD-E2B_00000925

PATIENT
  Age: 79 Year
  Sex: Male
  Weight: 78.5 kg

DRUGS (11)
  1. ETHYOL [Suspect]
     Active Substance: AMIFOSTINE
     Indication: RADIOTHERAPY
     Route: 058
     Dates: start: 20050120, end: 20050208
  2. FOLIC ACID. [Concomitant]
     Active Substance: FOLIC ACID
  3. CARBOPLATIN. [Concomitant]
     Active Substance: CARBOPLATIN
  4. COUMADIN [Concomitant]
     Active Substance: WARFARIN SODIUM
  5. VALIUM [Concomitant]
     Active Substance: DIAZEPAM
     Dosage: PRN
  6. COMPAZINE [Concomitant]
     Active Substance: PROCHLORPERAZINE MALEATE
     Dosage: PRE-ETHYOL
  7. RADIATION THERAPY [Concomitant]
     Active Substance: RADIATION THERAPY
     Indication: RADIOTHERAPY
     Dates: start: 20050120
  8. ALLOPURINOL. [Concomitant]
     Active Substance: ALLOPURINOL
  9. TAXOL [Concomitant]
     Active Substance: PACLITAXEL
  10. HCTZ [Concomitant]
     Active Substance: HYDROCHLOROTHIAZIDE
  11. ETHYOL [Suspect]
     Active Substance: AMIFOSTINE
     Indication: CHEMOTHERAPY
     Route: 058
     Dates: start: 20050120, end: 20050208

REACTIONS (3)
  - Injection site reaction [Unknown]
  - Stevens-Johnson syndrome [Unknown]
  - Tumour necrosis [Unknown]

NARRATIVE: CASE EVENT DATE: 20050214
